FAERS Safety Report 16444924 (Version 1)
Quarter: 2019Q2

REPORT INFORMATION
  Report Type: Spontaneous
  Country: ID (occurrence: ID)
  Receive Date: 20190618
  Receipt Date: 20190618
  Transmission Date: 20190711
  Serious: Yes (Death, Congenital Anomaly, Other)
  Sender: FDA-Public Use
  Company Number: ID-HERITAGE PHARMACEUTICALS-2019HTG00269

PATIENT

DRUGS (4)
  1. METHIMAZOLE. [Suspect]
     Active Substance: METHIMAZOLE
     Indication: BASEDOW^S DISEASE
     Dosage: 120 MG, 1X/DAY
     Route: 064
     Dates: start: 201305, end: 201308
  2. METHIMAZOLE. [Suspect]
     Active Substance: METHIMAZOLE
     Dosage: 60 MG/DAY
     Route: 064
     Dates: start: 201308
  3. METHIMAZOLE. [Suspect]
     Active Substance: METHIMAZOLE
     Dosage: 40 MG/DAY
     Route: 064
  4. METHIMAZOLE. [Suspect]
     Active Substance: METHIMAZOLE
     Dosage: 20 MG/DAY
     Route: 064

REACTIONS (4)
  - Septic shock [Fatal]
  - Foetal exposure during pregnancy [Recovered/Resolved]
  - Gastroschisis [Not Recovered/Not Resolved]
  - Foetal growth restriction [Not Recovered/Not Resolved]
